FAERS Safety Report 10074991 (Version 1)
Quarter: 2014Q2

REPORT INFORMATION
  Report Type: Report from Study
  Country: US (occurrence: US)
  Receive Date: 20140414
  Receipt Date: 20140414
  Transmission Date: 20141212
  Serious: Yes (Other)
  Sender: FDA-Public Use
  Company Number: US-ROCHE-1379452

PATIENT
  Sex: Female
  Weight: 106.69 kg

DRUGS (2)
  1. HERCEPTIN [Suspect]
     Indication: BREAST CANCER METASTATIC
     Route: 042
     Dates: start: 200610
  2. OMEPRAZOLE [Concomitant]
     Route: 048

REACTIONS (5)
  - Thrombosis in device [Recovered/Resolved]
  - Contrast media allergy [Recovered/Resolved]
  - Nausea [Recovering/Resolving]
  - Muscle spasms [Not Recovered/Not Resolved]
  - Hypersensitivity [Recovered/Resolved]
